FAERS Safety Report 5562573-5 (Version None)
Quarter: 2007Q4

REPORT INFORMATION
  Report Type: 
  Country: None (occurrence: None)
  Receive Date: 20071217
  Receipt Date: 20071207
  Transmission Date: 20080405
  Serious: Yes (Other)
  Sender: FDA-Public Use
  Company Number: GB-WYE-G00746707

PATIENT
  Sex: Male

DRUGS (6)
  1. ANADIN IBUPROFEN [Suspect]
     Indication: DEPRESSION
     Dosage: UNKNOWN
  2. METHYLENEDIOXYMETHAMFETAMINE [Concomitant]
     Dosage: UNKNOWN
  3. NUROFEN [Suspect]
     Dosage: UNKNOWN
     Dates: start: 20020820
  4. PAROXETINE [Suspect]
     Indication: PHOBIA
     Dosage: UNKNOWN
     Dates: start: 19990901
  5. CODEINE [Suspect]
     Dosage: UNKNOWN
     Dates: start: 20020820
  6. LOFEPRAMINE [Suspect]
     Dosage: UNKNOWN

REACTIONS (8)
  - CONSTIPATION [None]
  - DRUG INEFFECTIVE [None]
  - DRY MOUTH [None]
  - SEXUAL DYSFUNCTION [None]
  - SOCIAL PHOBIA [None]
  - SUICIDAL IDEATION [None]
  - SUICIDE ATTEMPT [None]
  - VISION BLURRED [None]
